FAERS Safety Report 4983659-X (Version None)
Quarter: 2006Q2

REPORT INFORMATION
  Report Type: 
  Country: None (occurrence: None)
  Receive Date: 20060425
  Receipt Date: 20060425
  Transmission Date: 20061013
  Serious: Yes (Hospitalization)
  Sender: FDA-Public Use
  Company Number: None

PATIENT
  Age: 57 Year
  Sex: Male

DRUGS (1)
  1. NAPROSYN [Suspect]
     Indication: PAIN
     Dosage: 250 MG 2 TABS

REACTIONS (1)
  - UPPER GASTROINTESTINAL HAEMORRHAGE [None]
